FAERS Safety Report 5608158-3 (Version None)
Quarter: 2008Q1

REPORT INFORMATION
  Report Type: 
  Country: None (occurrence: None)
  Receive Date: 20080130
  Receipt Date: 20080124
  Transmission Date: 20080703
  Serious: Yes (Other)
  Sender: FDA-Public Use
  Company Number: DE-SOLVAY-00208000383

PATIENT
  Age: 34 Year
  Sex: Female

DRUGS (14)
  1. NORETHISTERONE [Concomitant]
     Indication: INFERTILITY FEMALE
     Dosage: DAILY DOSE: 10 MILLIGRAM(S) FOR 18 DAYS
     Route: 065
  2. PROMETRIUM [Suspect]
     Indication: PRENATAL CARE
     Dosage: DAILY DOSE: 1000 MILLIGRAM(S)
     Route: 067
  3. PROMETRIUM [Suspect]
     Dosage: DAILY DOSE: 600 MILLIGRAM(S)
     Route: 067
  4. PROMETRIUM [Suspect]
     Dosage: DAILY DOSE: 400 MILLIGRAM(S)
     Route: 067
  5. FOLLICLE STIMULATING HORMONE [Concomitant]
     Indication: INFERTILITY FEMALE
     Dosage: DAILY DOSE: 200 IU X 3 DAYS
     Route: 065
  6. FOLLICLE STIMULATING HORMONE [Concomitant]
     Dosage: DAILY DOSE:  300 IU FOR 7 DAYS
     Route: 065
  7. PROGESTERONE [Suspect]
     Indication: INFERTILITY FEMALE
     Dosage: DAILY DOSE: 90 MILLIGRAM(S)
     Route: 067
  8. GONADOTROPIN RELEASING HORMONE [Concomitant]
     Indication: INFERTILITY FEMALE
     Dosage: DAILY DOSE:  UNKNOWN
     Route: 065
  9. GONADOTROPIN RELEASING HORMONE [Concomitant]
     Dosage: DAILY DOSE:  UNKNOWN
     Route: 065
  10. RECOMBINENT HUMAN CHORIONIC GONADOTROPHIN [Concomitant]
     Indication: INFERTILITY FEMALE
     Dosage: DAILY DOSE: 6500 IE ON DAY 13 ON THE FIRST STIMULATION
     Route: 058
  11. RECOMBINENT HUMAN CHORIONIC GONADOTROPHIN [Concomitant]
     Dosage: DAILY DOSE:  UNKNOWN
     Route: 065
  12. LEVOTHYROXINE SODIUM [Concomitant]
     Indication: HYPOTHYROIDISM
     Dosage: DAILY DOSE:  UNKNOWN
     Route: 048
  13. HUMAN GONADOTROPIN [Concomitant]
     Indication: INFERTILITY FEMALE
     Dosage: DAILY DOSE: 225 IE
     Route: 065
  14. ESTRADIOLE [Concomitant]
     Indication: INFERTILITY FEMALE
     Dosage: DAILY DOSE:  UNKNOWN
     Route: 065

REACTIONS (1)
  - CLUSTER HEADACHE [None]
